FAERS Safety Report 12634849 (Version 1)
Quarter: 2016Q3

REPORT INFORMATION
  Report Type: Spontaneous
  Country: US (occurrence: US)
  Receive Date: 20160808
  Receipt Date: 20160808
  Transmission Date: 20161109
  Serious: No
  Sender: FDA-Public Use
  Company Number: US-GREER LABORATORIES, INC.-1055955

PATIENT
  Age: 40 Year
  Sex: Female
  Weight: 68.18 kg

DRUGS (6)
  1. MOLDS, RUSTS AND SMUTS, GS MOLD MIX #1 [Suspect]
     Active Substance: ALTERNARIA ALTERNATA\ ASPERGILLUS NIGER VAR. NIGER\COCHLIOBOLUS SATIVUS\CLADOSPORIUM SPHAEROSPERMUM\PENICILLIUM CHRYSOGENUM VAR. CHRYSOGENUM
     Indication: MULTIPLE ALLERGIES
     Route: 058
  2. POLLENS - TREES, TREE MIX 11 [Suspect]
     Active Substance: ACER SACCHARUM POLLEN\BETULA NIGRA POLLEN\CARYA OVATA POLLEN\FAGUS GRANDIFOLIA POLLEN\FRAXINUS AMERICANA POLLEN\JUGLANS NIGRA POLLEN\PLATANUS OCCIDENTALIS POLLEN\POPULUS DELTOIDES POLLEN\QUERCUS RUBRA POLLEN\SALIX NIGRA POLLEN\ULMUS AMERICANA POLLEN
     Route: 058
  3. POLLENS - WEEDS AND GARDEN PLANTS, SAGEBRUSH, MUGWORT ARTEMISIA VULGARIS [Suspect]
     Active Substance: ARTEMISIA VULGARIS POLLEN
     Route: 058
  4. ALLERGENIC EXTRACTS STANDARDIZED MITE (DERMATOPHAGOIDES FARINAE) [Suspect]
     Active Substance: DERMATOPHAGOIDES FARINAE
     Route: 058
  5. MOLDS, RUSTS AND SMUTS, GS MOLD MIX #2 [Suspect]
     Active Substance: AUREOBASIDIUM PULLULANS VAR. PULLUTANS\COCHLIOBOLUS SPICIFER\GIBBERELLA FUJIKUROI\MUCOR PLUMBEUS\RHIZOPUS STOLONIFER
     Route: 058
  6. STANDARDIZED GRASS POLLEN, GRASS MIX 7 [Suspect]
     Active Substance: AGROSTIS GIGANTEA POLLEN\ANTHOXANTHUM ODORATUM POLLEN\DACTYLIS GLOMERATA POLLEN\FESTUCA PRATENSIS POLLEN\LOLIUM PERENNE POLLEN\PHLEUM PRATENSE POLLEN\POA PRATENSIS POLLEN
     Route: 058

REACTIONS (2)
  - Dermatitis allergic [Recovering/Resolving]
  - Pruritus [Recovering/Resolving]

NARRATIVE: CASE EVENT DATE: 20160629
